FAERS Safety Report 9371399 (Version 2)
Quarter: 2013Q3

REPORT INFORMATION
  Report Type: Report from Study
  Country: JP (occurrence: JP)
  Receive Date: 20130627
  Receipt Date: 20130807
  Transmission Date: 20140515
  Serious: Yes (Life-Threatening)
  Sender: FDA-Public Use
  Company Number: JP-ROCHE-1241560

PATIENT
  Age: 67 Year
  Sex: Female
  Weight: 53 kg

DRUGS (27)
  1. METHOXY POLYETHYLENE GLYCOL-EPOETIN BETA [Suspect]
     Indication: NEPHROGENIC ANAEMIA
     Route: 042
     Dates: start: 20120806, end: 20121126
  2. METHOXY POLYETHYLENE GLYCOL-EPOETIN BETA [Suspect]
     Indication: NEPHROGENIC ANAEMIA
     Route: 042
     Dates: start: 20121225, end: 20121225
  3. METHOXY POLYETHYLENE GLYCOL-EPOETIN BETA [Suspect]
     Indication: NEPHROGENIC ANAEMIA
     Route: 042
     Dates: start: 20130123, end: 20130320
  4. METHOXY POLYETHYLENE GLYCOL-EPOETIN BETA [Suspect]
     Indication: NEPHROGENIC ANAEMIA
     Route: 042
     Dates: start: 20130415, end: 20130415
  5. METHOXY POLYETHYLENE GLYCOL-EPOETIN BETA [Suspect]
     Indication: NEPHROGENIC ANAEMIA
     Route: 042
     Dates: start: 20130513, end: 20130513
  6. METHOXY POLYETHYLENE GLYCOL-EPOETIN BETA [Suspect]
     Indication: NEPHROGENIC ANAEMIA
     Route: 042
     Dates: start: 20130610
  7. PERSANTIN [Concomitant]
     Route: 048
  8. SOFALCONE [Concomitant]
     Indication: PROPHYLAXIS
     Route: 048
  9. RENAGEL [Concomitant]
     Route: 048
     Dates: end: 20120822
  10. RENAGEL [Concomitant]
     Route: 048
     Dates: start: 20120823
  11. ARGAMATE [Concomitant]
     Route: 048
     Dates: end: 20121016
  12. ARGAMATE [Concomitant]
     Route: 048
     Dates: start: 20121017
  13. FOSRENOL [Concomitant]
     Route: 048
  14. AVAPRO [Concomitant]
     Route: 048
     Dates: end: 20121016
  15. AVAPRO [Concomitant]
     Route: 048
     Dates: start: 20121017, end: 20121119
  16. AZILVA [Concomitant]
     Route: 048
     Dates: start: 20121120, end: 20130503
  17. LOSARTAN POTASSIUM [Concomitant]
     Route: 048
     Dates: start: 20130508
  18. ADALAT CR [Concomitant]
     Route: 048
     Dates: end: 20121003
  19. NIFEDIPINE [Concomitant]
     Route: 048
     Dates: start: 20121004
  20. CARDENALIN [Concomitant]
     Route: 048
     Dates: start: 20121010, end: 20130115
  21. CARDENALIN [Concomitant]
     Route: 048
     Dates: start: 20130116
  22. CATAPRES [Concomitant]
     Route: 048
     Dates: start: 20120130
  23. BONOTEO [Concomitant]
     Route: 048
  24. MAXACALCITOL [Concomitant]
     Dosage: AT DIALYSIS
     Route: 042
  25. CINACALCET HYDROCHLORIDE [Concomitant]
     Route: 048
     Dates: end: 20121113
  26. CINACALCET HYDROCHLORIDE [Concomitant]
     Route: 048
     Dates: start: 20121114
  27. METHOXY POLYETHYLENE GLYCOL-EPOETIN BETA [Suspect]
     Indication: NEPHROGENIC ANAEMIA
     Route: 042
     Dates: start: 20120514, end: 20120709

REACTIONS (2)
  - Blood pressure increased [Recovering/Resolving]
  - Renal cancer [Recovered/Resolved]
